FAERS Safety Report 8850540 (Version 1)
Quarter: 2012Q4

REPORT INFORMATION
  Report Type: 
  Country: US (occurrence: US)
  Receive Date: 20121019
  Receipt Date: 20121019
  Transmission Date: 20130627
  Serious: Yes (Other)
  Sender: FDA-Public Use
  Company Number: CHPA2012US021491

PATIENT
  Age: 59 Year
  Sex: Female

DRUGS (1)
  1. MYOFLEX ANALGESIC CREME [Suspect]
     Indication: BACK PAIN
     Dosage: Unk, as needed
     Route: 061

REACTIONS (3)
  - Cartilage injury [Recovered/Resolved]
  - Arthralgia [Unknown]
  - Pain [Not Recovered/Not Resolved]
